FAERS Safety Report 7329349-X (Version None)
Quarter: 2011Q1

REPORT INFORMATION
  Report Type: 
  Country: None (occurrence: None)
  Receive Date: 20110303
  Receipt Date: 20110223
  Transmission Date: 20110831
  Serious: Yes (Hospitalization)
  Sender: FDA-Public Use
  Company Number: DE-MERCK-1102DEU00129

PATIENT
  Age: 69 Year
  Sex: Male

DRUGS (7)
  1. JANUVIA [Suspect]
     Indication: INSULIN-REQUIRING TYPE 2 DIABETES MELLITUS
     Route: 048
     Dates: start: 20110112, end: 20110115
  2. TORSEMIDE [Concomitant]
     Route: 048
     Dates: start: 20110101
  3. AMLODIPINE [Concomitant]
     Route: 048
  4. LISINOPRIL [Concomitant]
     Route: 048
  5. SIMVASTATIN [Concomitant]
     Route: 048
     Dates: end: 20110115
  6. SPIRONOLACTONE [Concomitant]
     Route: 048
     Dates: end: 20110115
  7. METFORMIN [Concomitant]
     Indication: INSULIN-REQUIRING TYPE 2 DIABETES MELLITUS
     Route: 048

REACTIONS (6)
  - MYOPATHY [None]
  - DIABETIC NEUROPATHY [None]
  - HYPOTHYROIDISM [None]
  - RHABDOMYOLYSIS [None]
  - HYPERURICAEMIA [None]
  - BLOOD CREATINE PHOSPHOKINASE INCREASED [None]
